FAERS Safety Report 19510669 (Version 2)
Quarter: 2023Q4

REPORT INFORMATION
  Report Type: Spontaneous
  Country: AT (occurrence: AT)
  Receive Date: 20210709
  Receipt Date: 20231012
  Transmission Date: 20240109
  Serious: Yes (Hospitalization, Other)
  Sender: FDA-Public Use
  Company Number: AT-CELLTRION HEALTHCARE HUNGARY KFT-2019AT028754

PATIENT
  Age: 54 Year
  Sex: Female
  Weight: 75 kg

DRUGS (74)
  1. TRASTUZUMAB [Suspect]
     Active Substance: TRASTUZUMAB
     Indication: HER2 positive breast cancer
     Dosage: 600 MILLIGRAM, Q3WK
     Route: 042
     Dates: start: 20191011, end: 20191025
  2. TRASTUZUMAB [Suspect]
     Active Substance: TRASTUZUMAB
     Dosage: 378 UNK
     Route: 042
     Dates: start: 20191011, end: 20191025
  3. TRASTUZUMAB [Suspect]
     Active Substance: TRASTUZUMAB
     Dosage: 378 UNK
     Route: 042
     Dates: start: 20180328, end: 20180328
  4. TRASTUZUMAB [Suspect]
     Active Substance: TRASTUZUMAB
     Dosage: 600 MILLIGRAM, Q3WK
     Route: 042
     Dates: start: 20180626
  5. TRASTUZUMAB [Suspect]
     Active Substance: TRASTUZUMAB
     Dosage: 378 UNK
     Route: 042
     Dates: start: 20180626, end: 20181010
  6. TRASTUZUMAB [Suspect]
     Active Substance: TRASTUZUMAB
     Dosage: 378 UNK
     Route: 042
     Dates: start: 20181102, end: 20181123
  7. TRASTUZUMAB [Suspect]
     Active Substance: TRASTUZUMAB
     Dosage: 600 MILLIGRAM, Q3WK
     Route: 042
     Dates: start: 20180328, end: 20180328
  8. TRASTUZUMAB [Suspect]
     Active Substance: TRASTUZUMAB
     Dosage: 408 MILLIGRAM, Q3WK
     Route: 042
     Dates: start: 20180423, end: 20180423
  9. TRASTUZUMAB [Suspect]
     Active Substance: TRASTUZUMAB
     Dosage: 384 MILLIGRAM, Q3WK
     Route: 042
     Dates: start: 20180515, end: 20180515
  10. TRASTUZUMAB [Suspect]
     Active Substance: TRASTUZUMAB
     Dosage: 378 UNK
     Route: 042
     Dates: start: 20181214, end: 20190109
  11. XGEVA [Suspect]
     Active Substance: DENOSUMAB
     Indication: Product used for unknown indication
     Dosage: UNK
     Route: 065
     Dates: start: 20191219
  12. PACLITAXEL [Suspect]
     Active Substance: PACLITAXEL
     Indication: HER2 positive breast cancer
     Dosage: 177.17 MILLIGRAM, QWK
     Route: 042
     Dates: start: 20180612, end: 20180619
  13. PACLITAXEL [Suspect]
     Active Substance: PACLITAXEL
     Dosage: 172.67 MILLIGRAM, QWK
     Route: 042
     Dates: start: 20180515, end: 20180515
  14. PACLITAXEL [Suspect]
     Active Substance: PACLITAXEL
     Dosage: 171.51 MILLIGRAM, QWK
     Route: 042
     Dates: start: 20181207, end: 20181221
  15. PACLITAXEL [Suspect]
     Active Substance: PACLITAXEL
     Dosage: 172.67 MILLIGRAM, QWK
     Route: 042
     Dates: start: 20180605, end: 20180605
  16. PACLITAXEL [Suspect]
     Active Substance: PACLITAXEL
     Dosage: 172.67 MILLIGRAM, QWK
     Route: 042
     Dates: start: 20190102, end: 20190102
  17. PACLITAXEL [Suspect]
     Active Substance: PACLITAXEL
     Dosage: 171.51 MILLIGRAM, QWK
     Route: 042
     Dates: start: 20190109, end: 20190109
  18. PACLITAXEL [Suspect]
     Active Substance: PACLITAXEL
     Dosage: 177.17 MILLIGRAM, QWK
     Route: 042
     Dates: start: 20180522, end: 20180529
  19. PACLITAXEL [Suspect]
     Active Substance: PACLITAXEL
     Dosage: 170.35 MILLIGRAM, QWK
     Route: 042
     Dates: start: 20180626, end: 20180718
  20. PACLITAXEL [Suspect]
     Active Substance: PACLITAXEL
     Dosage: 172.67 MILLIGRAM, QWK
     Route: 042
     Dates: start: 20190116, end: 20190116
  21. PACLITAXEL [Suspect]
     Active Substance: PACLITAXEL
     Dosage: 171.51 MILLIGRAM, QWK
     Route: 042
     Dates: start: 20181102, end: 20181123
  22. PACLITAXEL [Suspect]
     Active Substance: PACLITAXEL
     Dosage: 177.17 MILLIGRAM, QWK
     Route: 042
     Dates: start: 20180416, end: 20180508
  23. CAPECITABINE [Suspect]
     Active Substance: CAPECITABINE
     Indication: HER2 positive breast cancer
     Dosage: 500 MG, OTHER
     Route: 048
     Dates: start: 20191219
  24. CAPECITABINE [Suspect]
     Active Substance: CAPECITABINE
     Dosage: 500 MG, OTHER
     Route: 048
     Dates: start: 20191126, end: 20191218
  25. ADO-TRASTUZUMAB EMTANSINE [Suspect]
     Active Substance: ADO-TRASTUZUMAB EMTANSINE
     Indication: HER2 positive breast cancer
     Dosage: 230.4 MG; EVERY 3 WEEK; DOSE ON 17/MAY/2019, MOST RECENT DOSE PRIOR TO THE EVENT: 28/JUN/2019
     Route: 040
     Dates: start: 20190131, end: 20190517
  26. ADO-TRASTUZUMAB EMTANSINE [Suspect]
     Active Substance: ADO-TRASTUZUMAB EMTANSINE
     Dosage: 230.4 MG; EVERY 3 WEEK; DOSE ON 17/MAY/2019
     Route: 042
     Dates: start: 20190131
  27. ADO-TRASTUZUMAB EMTANSINE [Suspect]
     Active Substance: ADO-TRASTUZUMAB EMTANSINE
     Dosage: 230.4 MILLIGRAM, Q3WK
     Route: 040
     Dates: start: 20210228
  28. ADO-TRASTUZUMAB EMTANSINE [Suspect]
     Active Substance: ADO-TRASTUZUMAB EMTANSINE
     Dosage: UNK
     Route: 040
     Dates: start: 20200311
  29. ADO-TRASTUZUMAB EMTANSINE [Suspect]
     Active Substance: ADO-TRASTUZUMAB EMTANSINE
     Route: 040
     Dates: start: 20190517
  30. ADO-TRASTUZUMAB EMTANSINE [Suspect]
     Active Substance: ADO-TRASTUZUMAB EMTANSINE
     Route: 040
     Dates: start: 20190628
  31. NERATINIB [Suspect]
     Active Substance: NERATINIB
     Indication: HER2 positive breast cancer
     Dosage: 1440 MG, QD
     Route: 048
     Dates: start: 20200119, end: 20200129
  32. NERATINIB [Suspect]
     Active Substance: NERATINIB
     Dosage: 1440 MG, QD
     Route: 048
     Dates: start: 20200108, end: 20200118
  33. NERATINIB [Suspect]
     Active Substance: NERATINIB
     Dosage: UNK
     Route: 048
  34. PERTUZUMAB [Suspect]
     Active Substance: PERTUZUMAB
     Indication: HER2 positive breast cancer
     Dosage: 420 MG EVERY 3 WEEKS
     Route: 040
     Dates: start: 20181214, end: 20190109
  35. PERTUZUMAB [Suspect]
     Active Substance: PERTUZUMAB
     Dosage: 840 MG EVERY 3 WEEK; MOST RECENT DOSE PRIOR TO THE EVENT: 28/MAR/2018, 14/DEC/2018
     Route: 040
     Dates: start: 20180328, end: 20180328
  36. PERTUZUMAB [Suspect]
     Active Substance: PERTUZUMAB
     Dosage: 840 MG EVERY 3 WEEK; MOST RECENT DOSE PRIOR TO THE EVENT: 14/DEC/2018
     Route: 042
     Dates: start: 20180328, end: 20180328
  37. PERTUZUMAB [Suspect]
     Active Substance: PERTUZUMAB
     Dosage: 420 MG EVERY 3 WEEKS
     Route: 040
     Dates: start: 20180423, end: 20180423
  38. PERTUZUMAB [Suspect]
     Active Substance: PERTUZUMAB
     Route: 040
     Dates: start: 20191011
  39. TAXOL [Suspect]
     Active Substance: PACLITAXEL
     Indication: HER2 positive breast cancer
     Dosage: WEEKLY, RECENT DOSE ON 09/APR/2018
     Route: 042
     Dates: start: 20180328, end: 20180409
  40. TAXOL [Suspect]
     Active Substance: PACLITAXEL
     Indication: Breast cancer
  41. VINORELBINE [Suspect]
     Active Substance: VINORELBINE TARTRATE
     Indication: HER2 positive breast cancer
     Dosage: 50 MILLIGRAM
     Route: 048
     Dates: start: 20191011, end: 20191025
  42. VINORELBINE [Suspect]
     Active Substance: VINORELBINE TARTRATE
     Dosage: UNK
     Route: 048
     Dates: start: 20191028
  43. NAVELBINE [Suspect]
     Active Substance: VINORELBINE TARTRATE
     Indication: HER2 positive breast cancer
     Dosage: 50 UG; RECENT DOSE: 28/OCT/2019
     Route: 048
     Dates: start: 20191011
  44. NAVELBINE [Suspect]
     Active Substance: VINORELBINE TARTRATE
     Dosage: UNK
     Route: 048
     Dates: start: 20191028
  45. METHOTREXATE [Suspect]
     Active Substance: METHOTREXATE
     Indication: HER2 positive breast cancer
     Dosage: 2.5 MG, EVERY 0.5 WEEK
     Route: 048
     Dates: start: 20200219, end: 20200309
  46. METHOTREXATE [Suspect]
     Active Substance: METHOTREXATE
     Route: 048
     Dates: start: 20200309
  47. PACLITAXEL [Suspect]
     Active Substance: PACLITAXEL
     Indication: HER2 positive breast cancer
     Dosage: 177.17 MG, 1/WEEK; MOST RECENT DOSE PRIOR TO THE EVENT: 08/MAY/2018, 16/JAN/2019,
     Route: 042
     Dates: start: 20180416, end: 20180508
  48. PACLITAXEL [Suspect]
     Active Substance: PACLITAXEL
     Dosage: 177.17 MG, DOSE ON 08/MAY/2018 MOST RECENT DOSE PRIOR TO THE EVENT: 16/JAN/2019
     Route: 042
     Dates: start: 20180416, end: 20180508
  49. PACLITAXEL [Suspect]
     Active Substance: PACLITAXEL
     Dosage: 170.35 MILLIGRAM, QWK
     Route: 042
     Dates: start: 20180626, end: 20180718
  50. PACLITAXEL [Suspect]
     Active Substance: PACLITAXEL
     Dosage: 172.67 MILLIGRAM
     Route: 042
     Dates: start: 20190116, end: 20190116
  51. PACLITAXEL [Suspect]
     Active Substance: PACLITAXEL
     Dosage: 177.51 MILLIGRAM, QWK
     Route: 042
     Dates: start: 20181102, end: 20181123
  52. PACLITAXEL [Suspect]
     Active Substance: PACLITAXEL
     Dosage: 147.76 MILLIGRAM, QWK
     Route: 042
     Dates: start: 20180328, end: 20180409
  53. PACLITAXEL [Suspect]
     Active Substance: PACLITAXEL
     Dosage: 147.76 MILLIGRAM, QWK
     Route: 042
     Dates: start: 20180522, end: 20180529
  54. PACLITAXEL [Suspect]
     Active Substance: PACLITAXEL
     Dosage: 177.17 MG, 1/WEEK; MOST RECENT DOSE PRIOR TO THE EVENT: 08/MAY/2018, 16/JAN/2019,
     Route: 042
     Dates: start: 20180612, end: 20180612
  55. PACLITAXEL [Suspect]
     Active Substance: PACLITAXEL
     Dosage: 172.67 MILLIGRAM
     Route: 042
     Dates: start: 20190102, end: 20190515
  56. ABRAXANE [Suspect]
     Active Substance: PACLITAXEL
     Indication: HER2 positive breast cancer
     Dosage: UNK
     Route: 042
     Dates: start: 20190116
  57. ABRAXANE [Suspect]
     Active Substance: PACLITAXEL
     Dosage: UNK
     Route: 042
     Dates: start: 20180508
  58. ABRAXANE [Suspect]
     Active Substance: PACLITAXEL
     Dosage: 177.17 MILLIGRAM
     Route: 042
     Dates: start: 20180416
  59. CYCLOPHOSPHAMIDE [Suspect]
     Active Substance: CYCLOPHOSPHAMIDE
     Indication: HER2 positive breast cancer
     Dosage: 50 MG, QD
     Route: 048
     Dates: start: 20200219, end: 20200309
  60. CYCLOPHOSPHAMIDE [Suspect]
     Active Substance: CYCLOPHOSPHAMIDE
     Dosage: 2.5 MG, EVERY 0.5 WEEK
     Route: 048
  61. Bepanthen [Concomitant]
     Indication: Onycholysis
     Dosage: UNK
     Route: 065
     Dates: start: 20180619
  62. Bepanthen [Concomitant]
     Indication: Conjunctivitis
  63. OCTENIDINE\PHENOXYETHANOL [Concomitant]
     Active Substance: OCTENIDINE\PHENOXYETHANOL
     Indication: Onycholysis
     Dosage: UNK
     Route: 065
     Dates: start: 20180725
  64. CALCIUM CARBONATE\CHOLECALCIFEROL [Concomitant]
     Active Substance: CALCIUM CARBONATE\CHOLECALCIFEROL
     Indication: Product used for unknown indication
     Dosage: ONGOING = CHECKED
     Dates: start: 20190425
  65. PANTOPRAZOLE SODIUM [Concomitant]
     Active Substance: PANTOPRAZOLE SODIUM
     Indication: Product used for unknown indication
     Dosage: ONGOING = CHECKED
     Route: 065
     Dates: start: 20191011
  66. LOPERAMIDE HYDROCHLORIDE [Concomitant]
     Active Substance: LOPERAMIDE HYDROCHLORIDE
     Dosage: UNK
     Dates: start: 20200108, end: 20200113
  67. KYTRIL [Concomitant]
     Active Substance: GRANISETRON HYDROCHLORIDE
     Indication: Product used for unknown indication
     Dosage: ONGOING = NOT CHECKED
     Route: 065
     Dates: start: 20190628, end: 20190830
  68. MYCOSTATIN [Concomitant]
     Active Substance: NYSTATIN
     Dates: start: 20191029, end: 20191104
  69. HYDROMORPHONE HYDROCHLORIDE [Concomitant]
     Active Substance: HYDROMORPHONE HYDROCHLORIDE
     Dosage: UNK
     Dates: start: 20200228, end: 20200410
  70. HYDROMORPHONE HYDROCHLORIDE [Concomitant]
     Active Substance: HYDROMORPHONE HYDROCHLORIDE
     Dosage: UNK
     Dates: start: 20200228, end: 20200311
  71. HYDROMORPHONE HYDROCHLORIDE [Concomitant]
     Active Substance: HYDROMORPHONE HYDROCHLORIDE
     Dosage: UNK
     Dates: start: 20200311, end: 20200410
  72. ZOFRAN [Concomitant]
     Active Substance: ONDANSETRON HYDROCHLORIDE
     Indication: Conjunctivitis
     Dosage: UNK
     Dates: start: 20180619
  73. ZOFRAN [Concomitant]
     Active Substance: ONDANSETRON HYDROCHLORIDE
     Indication: Onycholysis
     Dosage: UNK
     Dates: start: 20180725
  74. DEXAMETHASONE [Concomitant]
     Active Substance: DEXAMETHASONE
     Dates: start: 20190628, end: 20190830

REACTIONS (12)
  - Pain of skin [Recovered/Resolved]
  - Skin lesion [Recovering/Resolving]
  - Febrile neutropenia [Recovered/Resolved]
  - Stomatitis [Recovered/Resolved]
  - Overdose [Unknown]
  - Off label use [Unknown]
  - Intentional product use issue [Unknown]
  - Breast cancer metastatic [Recovering/Resolving]
  - Tumour pain [Recovered/Resolved]
  - Dyspnoea [Recovered/Resolved]
  - Diarrhoea [Recovered/Resolved]
  - C-reactive protein increased [Recovered/Resolved]

NARRATIVE: CASE EVENT DATE: 20190920
